FAERS Safety Report 5161844-4 (Version None)
Quarter: 2006Q4

REPORT INFORMATION
  Report Type: 
  Country: None (occurrence: None)
  Receive Date: 20061130
  Receipt Date: 20061002
  Transmission Date: 20070319
  Serious: No
  Sender: FDA-Public Use
  Company Number: US-GLAXOSMITHKLINE-A0622144A

PATIENT
  Age: 46 Year
  Sex: Female

DRUGS (14)
  1. WELLBUTRIN XL [Suspect]
     Indication: DEPRESSION
     Dosage: 150MG PER DAY
     Route: 048
     Dates: start: 20060821, end: 20060826
  2. ENTEX CAP [Concomitant]
  3. ZOLOFT [Concomitant]
  4. CALTRATE [Concomitant]
  5. NASONEX [Concomitant]
  6. SANCTURA [Concomitant]
  7. PROVIGIL [Concomitant]
  8. LIPITOR [Concomitant]
  9. DETROL LA [Concomitant]
  10. SINGULAIR [Concomitant]
  11. FOLIC ACID [Concomitant]
  12. STOOL SOFTENER [Concomitant]
  13. CALCIUM [Concomitant]
  14. MULTI-VITAMIN [Concomitant]

REACTIONS (2)
  - PELVIC INFLAMMATORY DISEASE [None]
  - POLLAKIURIA [None]
